FAERS Safety Report 14848970 (Version 3)
Quarter: 2018Q2

REPORT INFORMATION
  Report Type: Spontaneous
  Country: US (occurrence: US)
  Receive Date: 20180504
  Receipt Date: 20180524
  Transmission Date: 20180711
  Serious: Yes (Death)
  Sender: FDA-Public Use
  Company Number: US-PFIZER INC-2017367596

PATIENT
  Age: 45 Year
  Sex: Male
  Weight: 108 kg

DRUGS (20)
  1. ZYRTEC [Concomitant]
     Active Substance: CETIRIZINE HYDROCHLORIDE
     Indication: HYPERSENSITIVITY
     Dosage: 10 MG, AS NEEDED (10 MG 1 TABS, PO, QDAY, PRN)
     Route: 048
     Dates: start: 20141126
  2. CLOPIDOGREL [Concomitant]
     Active Substance: CLOPIDOGREL BISULFATE
     Dosage: 75 MG, 1X/DAY
     Route: 048
     Dates: start: 20170120
  3. MAG-OX 400 [Concomitant]
     Dosage: 800 MG, 2X/DAY
     Route: 048
     Dates: start: 20141126
  4. TORSEMIDE. [Concomitant]
     Active Substance: TORSEMIDE
     Dosage: 200 MG, 1X/DAY [200 MG =2 TAB(S)]
     Route: 048
     Dates: start: 20170823
  5. ASPIRIN 81 [Concomitant]
     Active Substance: ASPIRIN
     Dosage: 81 MG, 1X/DAY
     Route: 048
     Dates: start: 20150211
  6. CYCLOSPORINE. [Concomitant]
     Active Substance: CYCLOSPORINE
     Dosage: UNK
     Route: 048
  7. POTASSIUM CHLORIDE. [Concomitant]
     Active Substance: POTASSIUM CHLORIDE
     Dosage: 80 MEQ, 1X/DAY [4 TAB(S) 80 MEQ, PO, QDAY]
     Route: 048
     Dates: start: 20170823
  8. ATORVASTATIN [Concomitant]
     Active Substance: ATORVASTATIN
     Dosage: 10 MG, 1X/DAY
     Route: 048
     Dates: start: 20170120
  9. OSCAL [Concomitant]
     Active Substance: CALCIUM CARBONATE
     Dosage: 1.25 G, 1X/DAY
     Route: 048
     Dates: start: 20141126
  10. SOTALOL. [Concomitant]
     Active Substance: SOTALOL
     Dosage: 80 MG, 2X/DAY [Q12HR]
     Route: 048
     Dates: start: 20170120
  11. SULFAMETHOXAZOLE W/TRIMETHOPRIM [Concomitant]
     Active Substance: SULFAMETHOXAZOLE\TRIMETHOPRIM
     Dosage: 1 DF, UNK (SULFAMETHOXAZOLE 400 MG; TRIMETHOPRIM 80 MG)
     Route: 048
     Dates: start: 20170208
  12. RAPAMUNE [Suspect]
     Active Substance: SIROLIMUS
     Indication: HEART TRANSPLANT
     Dosage: 0.5 MG, DAILY
     Route: 048
     Dates: start: 20141210
  13. METAMUCIL [Concomitant]
     Active Substance: PLANTAGO SEED
     Dosage: UNK
     Route: 048
     Dates: start: 20161021
  14. RAPAMUNE [Suspect]
     Active Substance: SIROLIMUS
     Indication: CORONARY ARTERY DISEASE
  15. CHLOROTHIAZIDE. [Concomitant]
     Active Substance: CHLOROTHIAZIDE
     Dosage: 500 MG, 1X/DAY (EVE)
     Route: 048
     Dates: start: 20170818
  16. GLIMEPIRIDE. [Concomitant]
     Active Substance: GLIMEPIRIDE
     Dosage: 4 MG, 1X/DAY [4 MG = 1 TAB(S), PO, QDAY]
     Route: 048
     Dates: start: 20161021
  17. RANITIDINE. [Concomitant]
     Active Substance: RANITIDINE
     Dosage: 150 MG, 2X/DAY
     Route: 048
     Dates: start: 20170621
  18. SPIRONOLACTONE. [Concomitant]
     Active Substance: SPIRONOLACTONE
     Dosage: 50 MG, 1X/DAY [50 MG =2 TAB(S)]
     Route: 048
     Dates: start: 20170818
  19. CYCLOSPORINE. [Concomitant]
     Active Substance: CYCLOSPORINE
     Dosage: 100 MG, 2X/DAY [50 MG = 2 CAP(S), PO, BID]
     Route: 048
     Dates: start: 20170623
  20. SIROLIMUS. [Concomitant]
     Active Substance: SIROLIMUS
     Dosage: 0.5 MG, 1X/DAY
     Route: 048
     Dates: start: 20170823

REACTIONS (4)
  - Cardiac failure [Fatal]
  - Coronary artery disease [Fatal]
  - Product use in unapproved indication [Unknown]
  - Condition aggravated [Fatal]
